FAERS Safety Report 6053122-6 (Version None)
Quarter: 2009Q1

REPORT INFORMATION
  Report Type: 
  Country: None (occurrence: None)
  Receive Date: 20090127
  Receipt Date: 20090114
  Transmission Date: 20090719
  Serious: Yes (Death)
  Sender: FDA-Public Use
  Company Number: IT-TEVA-183932ISR

PATIENT
  Sex: Female

DRUGS (2)
  1. CARBOPLATIN [Suspect]
     Indication: LUNG ADENOCARCINOMA METASTATIC
     Route: 042
     Dates: start: 20081113, end: 20081224
  2. PEMETREXED [Concomitant]
     Indication: LUNG ADENOCARCINOMA METASTATIC
     Route: 042
     Dates: start: 20081113, end: 20081224

REACTIONS (1)
  - HELLP SYNDROME [None]
